FAERS Safety Report 7404230-6 (Version None)
Quarter: 2011Q2

REPORT INFORMATION
  Report Type: 
  Country: None (occurrence: None)
  Receive Date: 20110408
  Receipt Date: 20110406
  Transmission Date: 20111010
  Serious: Yes (Other)
  Sender: FDA-Public Use
  Company Number: US-AMGEN-USASP2011017437

PATIENT
  Age: 59 Year
  Sex: Female
  Weight: 118.82 kg

DRUGS (6)
  1. OMEPRAZOLE [Concomitant]
     Dosage: 20 MG, QD
  2. NPLATE [Suspect]
     Indication: IDIOPATHIC THROMBOCYTOPENIC PURPURA
     Dosage: 240 A?G, QWK
     Dates: start: 20110128, end: 20110318
  3. CORGARD [Concomitant]
     Dosage: 40 MG, QD
  4. EFFEXOR [Concomitant]
     Dosage: 150 MG, QD
  5. METFORMIN [Concomitant]
     Dosage: 1000 MG, QD
  6. LEVOTHYROXINE [Concomitant]
     Dosage: UNK UNK, QD

REACTIONS (1)
  - DEEP VEIN THROMBOSIS [None]
